FAERS Safety Report 11690636 (Version 1)
Quarter: 2015Q4

REPORT INFORMATION
  Report Type: Spontaneous
  Country: US (occurrence: US)
  Receive Date: 20151102
  Receipt Date: 20151102
  Transmission Date: 20160304
  Serious: Yes (Other)
  Sender: FDA-Public Use
  Company Number: US-SA-2015SA171492

PATIENT
  Age: 61 Year
  Sex: Female

DRUGS (13)
  1. DETROL [Concomitant]
     Active Substance: TOLTERODINE TARTRATE
  2. GABAPENTIN. [Concomitant]
     Active Substance: GABAPENTIN
  3. OMEGA 3 [Concomitant]
     Active Substance: OMEGA-3 FATTY ACIDS
     Dates: start: 20150605, end: 20150921
  4. FOLIC ACID. [Concomitant]
     Active Substance: FOLIC ACID
  5. METFORMIN HYDROCHLORIDE. [Concomitant]
     Active Substance: METFORMIN HYDROCHLORIDE
  6. NOVOLOG [Concomitant]
     Active Substance: INSULIN ASPART
  7. LANTUS [Concomitant]
     Active Substance: INSULIN GLARGINE
  8. LISINOPRIL. [Concomitant]
     Active Substance: LISINOPRIL
  9. SIMVASTATIN. [Concomitant]
     Active Substance: SIMVASTATIN
  10. VITAMIN D [Concomitant]
     Active Substance: CHOLECALCIFEROL
     Dates: start: 20150605, end: 20150921
  11. AUBAGIO [Suspect]
     Active Substance: TERIFLUNOMIDE
     Indication: MULTIPLE SCLEROSIS
     Route: 048
  12. CYMBALTA [Concomitant]
     Active Substance: DULOXETINE HYDROCHLORIDE
  13. FLAXSEED [Concomitant]
     Active Substance: FLAX SEED
     Dates: start: 20150605, end: 20151020

REACTIONS (1)
  - Cardiac failure congestive [Unknown]
